FAERS Safety Report 14569789 (Version 1)
Quarter: 2018Q1

REPORT INFORMATION
  Report Type: Spontaneous
  Country: US (occurrence: US)
  Receive Date: 20180224
  Receipt Date: 20180224
  Transmission Date: 20180509
  Serious: No
  Sender: FDA-Public Use
  Company Number: US-009507513-1801USA014756

PATIENT
  Sex: Male

DRUGS (3)
  1. LUPRON [Concomitant]
     Active Substance: LEUPROLIDE ACETATE
     Dosage: UNK
     Dates: start: 2014
  2. PRINIVIL [Concomitant]
     Active Substance: LISINOPRIL
     Route: 048
  3. KEYTRUDA [Suspect]
     Active Substance: PEMBROLIZUMAB
     Indication: PROSTATE CANCER
     Dosage: UNK
     Route: 042
     Dates: start: 201710

REACTIONS (5)
  - Prostatic specific antigen decreased [Not Recovered/Not Resolved]
  - Product use in unapproved indication [Unknown]
  - Prostatic specific antigen increased [Unknown]
  - Therapeutic product effective for unapproved indication [Unknown]
  - Prostatic specific antigen decreased [Recovered/Resolved]

NARRATIVE: CASE EVENT DATE: 2017
